FAERS Safety Report 14506007 (Version 1)
Quarter: 2018Q1

REPORT INFORMATION
  Report Type: Spontaneous
  Country: US (occurrence: US)
  Receive Date: 20180207
  Receipt Date: 20180207
  Transmission Date: 20180509
  Serious: Yes (Other)
  Sender: FDA-Public Use
  Company Number: None

PATIENT

DRUGS (1)
  1. RIVAROXABAN [Suspect]
     Active Substance: RIVAROXABAN

REACTIONS (6)
  - Dyspnoea [None]
  - Haematocrit decreased [None]
  - Haemoglobin decreased [None]
  - Pneumonia [None]
  - Pulmonary embolism [None]
  - Cardiac failure congestive [None]
